FAERS Safety Report 12257701 (Version 1)
Quarter: 2016Q2

REPORT INFORMATION
  Report Type: Spontaneous
  Country: CN (occurrence: CN)
  Receive Date: 20160412
  Receipt Date: 20160412
  Transmission Date: 20160815
  Serious: Yes (Hospitalization)
  Sender: FDA-Public Use
  Company Number: CN-PFIZER INC-2016207229

PATIENT
  Age: 69 Year
  Sex: Male
  Weight: 75 kg

DRUGS (2)
  1. SPIRONOLACTONE. [Suspect]
     Active Substance: SPIRONOLACTONE
     Indication: POLYURIA
     Dosage: 20 MG, 3X/DAY
     Route: 048
     Dates: start: 20151010, end: 20151018
  2. CELEBREX [Suspect]
     Active Substance: CELECOXIB
     Indication: ANALGESIC THERAPY
     Dosage: 0.2 G, 1X/DAY
     Route: 048
     Dates: start: 20151006, end: 20151018

REACTIONS (2)
  - Renal impairment [Recovering/Resolving]
  - Condition aggravated [Recovering/Resolving]

NARRATIVE: CASE EVENT DATE: 20151018
